FAERS Safety Report 5546086-2 (Version None)
Quarter: 2007Q4

REPORT INFORMATION
  Report Type: 
  Country: None (occurrence: None)
  Receive Date: 20071211
  Receipt Date: 20071001
  Transmission Date: 20080405
  Serious: No
  Sender: FDA-Public Use
  Company Number: US-BRISTOL-MYERS SQUIBB COMPANY-13925375

PATIENT
  Sex: Male

DRUGS (2)
  1. EMSAM [Suspect]
     Route: 062
  2. ANTIHISTAMINE DRUGS [Interacting]
     Indication: SEASONAL ALLERGY

REACTIONS (1)
  - FEELING ABNORMAL [None]
